FAERS Safety Report 16225047 (Version 2)
Quarter: 2019Q2

REPORT INFORMATION
  Report Type: Spontaneous
  Country: US (occurrence: US)
  Receive Date: 20190422
  Receipt Date: 20190529
  Transmission Date: 20190711
  Serious: Yes (Hospitalization)
  Sender: FDA-Public Use
  Company Number: US-THERAPEUTICSMD-2019TMD00627

PATIENT
  Sex: Female
  Weight: 58.96 kg

DRUGS (7)
  1. IMVEXXY [Suspect]
     Active Substance: ESTRADIOL
     Indication: VULVOVAGINAL PAIN
  2. ISOSORBIDE. [Concomitant]
     Active Substance: ISOSORBIDE
  3. IMVEXXY [Suspect]
     Active Substance: ESTRADIOL
     Indication: VULVOVAGINAL DRYNESS
     Dosage: 10 ?G, 2X/WEEK SOMETIMES AT NIGHT SOMETIMES IN MORNING
     Route: 067
     Dates: start: 2019, end: 2019
  4. LOSARTAN. [Concomitant]
     Active Substance: LOSARTAN
  5. DILTIAZEM. [Concomitant]
     Active Substance: DILTIAZEM
  6. IMVEXXY [Suspect]
     Active Substance: ESTRADIOL
     Indication: VULVOVAGINAL BURNING SENSATION
     Dosage: 10 ?G, 2X/WEEK SOMETIMES AT NIGHT SOMETIMES IN MORNING
     Route: 067
     Dates: start: 2019, end: 20190514
  7. PANTOPRAZOLE [Concomitant]
     Active Substance: PANTOPRAZOLE

REACTIONS (7)
  - Vulvovaginal pain [Not Recovered/Not Resolved]
  - Procedural complication [Recovered/Resolved]
  - Pain [Recovered/Resolved]
  - Product substitution issue [Recovered/Resolved]
  - Vulvovaginal dryness [Not Recovered/Not Resolved]
  - Nausea [Not Recovered/Not Resolved]
  - Drug ineffective for unapproved indication [Recovered/Resolved]

NARRATIVE: CASE EVENT DATE: 2019
